FAERS Safety Report 8092387-6 (Version None)
Quarter: 2012Q1

REPORT INFORMATION
  Report Type: 
  Country: None (occurrence: None)
  Receive Date: 20120128
  Receipt Date: 20110831
  Transmission Date: 20120608
  Serious: No
  Sender: FDA-Public Use
  Company Number: US-ABBOTT-11P-163-0851033-00

PATIENT
  Sex: Female

DRUGS (5)
  1. MINOCYCLINE HCL [Concomitant]
     Indication: RHEUMATOID ARTHRITIS
     Dosage: TWICE A DAY
  2. HUMIRA [Suspect]
     Route: 058
     Dates: start: 20110813
  3. HUMIRA [Suspect]
     Indication: RHEUMATOID ARTHRITIS
     Route: 058
     Dates: start: 20051001, end: 20060101
  4. MEDROL [Concomitant]
     Indication: RHEUMATOID ARTHRITIS
  5. CLINDAMYCIN [Concomitant]
     Indication: RHEUMATOID ARTHRITIS

REACTIONS (5)
  - ARTHRALGIA [None]
  - RHEUMATOID ARTHRITIS [None]
  - GESTATIONAL DIABETES [None]
  - DRUG INEFFECTIVE [None]
  - FEELING ABNORMAL [None]
